FAERS Safety Report 8288915-8 (Version None)
Quarter: 2012Q2

REPORT INFORMATION
  Report Type: 
  Country: None (occurrence: None)
  Receive Date: 20120417
  Receipt Date: 20120409
  Transmission Date: 20120825
  Serious: Yes (Hospitalization, Disabling)
  Sender: FDA-Public Use
  Company Number: US-BAYER-2010-002138

PATIENT
  Age: 37 Year
  Sex: Female
  Weight: 72.562 kg

DRUGS (10)
  1. NORCO [Concomitant]
     Indication: PAIN
     Dosage: UNK
     Dates: start: 20060801, end: 20090201
  2. XANAX [Concomitant]
     Indication: ANXIETY
     Dosage: 0.25 MG, PRN
     Route: 048
     Dates: start: 20081124
  3. PERCOCET [Concomitant]
     Indication: PAIN
     Dosage: UNK
     Route: 048
     Dates: start: 20080201, end: 20091201
  4. MOTRIN [Concomitant]
     Indication: BACK PAIN
     Dosage: UNK UNK, PRN
     Route: 048
  5. TYLENOL ARTHRITIS [Concomitant]
     Indication: ARTHRALGIA
     Dosage: 650 MG, PRN
     Route: 048
     Dates: start: 20081123
  6. NSAID'S [Concomitant]
     Indication: BACK PAIN
     Dosage: UNK UNK, PRN
  7. YAZ [Suspect]
     Indication: PRODUCT USED FOR UNKNOWN INDICATION
     Dosage: UNK
     Dates: start: 20080701, end: 20081124
  8. PRILOSEC [Concomitant]
     Dosage: 40 MG, UNK
     Dates: start: 20081127, end: 20081129
  9. AMBIEN [Concomitant]
     Dosage: 10 MG, UNK
     Route: 048
     Dates: start: 20081126
  10. SOMA [Concomitant]
     Indication: MUSCLE SPASMS
     Dosage: 350 MG, Q3HR
     Dates: start: 20081114, end: 20081124

REACTIONS (10)
  - WALKING DISTANCE TEST ABNORMAL [None]
  - FEAR [None]
  - QUALITY OF LIFE DECREASED [None]
  - MUSCLE SPASMS [None]
  - HERNIA [None]
  - DEEP VEIN THROMBOSIS [None]
  - GROIN PAIN [None]
  - ANXIETY [None]
  - BACK PAIN [None]
  - OEDEMA PERIPHERAL [None]
